FAERS Safety Report 18310416 (Version 1)
Quarter: 2020Q3

REPORT INFORMATION
  Report Type: Spontaneous
  Country: LU (occurrence: LU)
  Receive Date: 20200925
  Receipt Date: 20200925
  Transmission Date: 20201103
  Serious: Yes (Hospitalization, Other)
  Sender: FDA-Public Use
  Company Number: LU-ALKEM LABORATORIES LIMITED-LU-ALKEM-2020-06036

PATIENT
  Age: 18 Year
  Sex: Female

DRUGS (3)
  1. METAMIZOLE [Suspect]
     Active Substance: METAMIZOLE
     Indication: NERVE BLOCK
     Dosage: 500 MG/ML
     Route: 065
  2. PIROXICAM. [Suspect]
     Active Substance: PIROXICAM
     Indication: NERVE BLOCK
     Dosage: 20 MG/3 ML
     Route: 065
  3. LIDOCAINE. [Suspect]
     Active Substance: LIDOCAINE
     Indication: NERVE BLOCK
     Dosage: 30 MG/3ML
     Route: 065

REACTIONS (1)
  - Cerebellar syndrome [Recovered/Resolved]
